FAERS Safety Report 9113340 (Version 1)
Quarter: 2013Q1

REPORT INFORMATION
  Report Type: Spontaneous
  Country: US (occurrence: US)
  Receive Date: 20130130
  Receipt Date: 20130130
  Transmission Date: 20140127
  Serious: Yes (Other)
  Sender: FDA-Public Use
  Company Number: US-RB-049246-13

PATIENT
  Age: 6 Year
  Sex: Male

DRUGS (1)
  1. DELSYM [Suspect]
     Indication: PRODUCT USED FOR UNKNOWN INDICATION
     Dosage: ON 18-JAN-2013,2-3 TEASPOON.
     Route: 048
     Dates: start: 20130117

REACTIONS (4)
  - Hallucination [Recovered/Resolved]
  - Vomiting [Recovered/Resolved]
  - Malaise [Recovered/Resolved]
  - Accidental overdose [Recovered/Resolved]
